FAERS Safety Report 13354040 (Version 1)
Quarter: 2017Q1

REPORT INFORMATION
  Report Type: Spontaneous
  Country: US (occurrence: US)
  Receive Date: 20170320
  Receipt Date: 20170320
  Transmission Date: 20170429
  Serious: Yes (Other)
  Sender: FDA-Public Use
  Company Number: None

PATIENT
  Age: 61 Year
  Sex: Male
  Weight: 78.75 kg

DRUGS (4)
  1. DAILY VITAMINS ^ONE A DAY^ [Concomitant]
     Active Substance: VITAMINS
  2. MINERALS [Concomitant]
     Active Substance: MINERALS
  3. ENZYMES [Concomitant]
  4. BENZOIN TINCTURE COMPOUND [Suspect]
     Active Substance: BENZOIN TINCTURE, COMPOUND
     Indication: PRODUCT USED FOR UNKNOWN INDICATION
     Dosage: OTHER FREQUENCY:ONCE BEFORE SURGER;?
     Route: 061
     Dates: start: 20170317, end: 20170317

REACTIONS (3)
  - Blister [None]
  - Pruritus [None]
  - Application site burn [None]

NARRATIVE: CASE EVENT DATE: 20170317
